FAERS Safety Report 25572081 (Version 1)
Quarter: 2025Q3

REPORT INFORMATION
  Report Type: Spontaneous
  Country: EU (occurrence: EU)
  Receive Date: 20250717
  Receipt Date: 20250717
  Transmission Date: 20251021
  Serious: Yes (Life-Threatening)
  Sender: TEVA
  Company Number: None

PATIENT
  Age: 77 Year
  Sex: Female
  Weight: 72 kg

DRUGS (6)
  1. CAPECITABINE [Suspect]
     Active Substance: CAPECITABINE
     Indication: Cholangiocarcinoma
     Dosage: 2000MG MORNING AND EVENING 14 DAYS OUT OF 21
     Route: 048
     Dates: start: 20250203, end: 20250307
  2. COVERAM [Concomitant]
     Active Substance: AMLODIPINE\PERINDOPRIL
     Indication: Product used for unknown indication
     Dosage: 1 TABLET IN THE MORNING, 5 MG/5 MG,
     Route: 048
  3. CHOLECALCIFEROL CRISTERS [Concomitant]
     Indication: Product used for unknown indication
     Dosage: 1 AMPOULE 100,000 IU EVERY 3 MONTHS, ORAL SOLUTION IN AMPOULE
     Route: 048
  4. BISOPROLOL [Concomitant]
     Active Substance: BISOPROLOL
     Indication: Product used for unknown indication
     Dosage: 1 TABLET OF 2.5 MG IN THE MORNING, BISOPROLOL ACCORD HEALTHCARE, SCORED
     Route: 048
  5. LEVOTHYROXINE [Concomitant]
     Active Substance: LEVOTHYROXINE
     Indication: Hypothyroidism
     Dosage: 100 MCG IN THE MORNING, 100 MICROGRAMS, SCORED TABLET
     Route: 048
  6. CREON [Concomitant]
     Active Substance: PANCRELIPASE AMYLASE\PANCRELIPASE LIPASE\PANCRELIPASE PROTEASE
     Indication: Product used for unknown indication
     Dosage: 1 IN THE MORNING, 2 AT NOON, 2 IN THE EVENING, 25,000 U, GASTRO-RESISTANT GRANULES IN CAPSULES
     Route: 048

REACTIONS (7)
  - Febrile bone marrow aplasia [Recovered/Resolved]
  - Septic shock [Recovered/Resolved]
  - Medication error [Recovered/Resolved]
  - Drug reaction with eosinophilia and systemic symptoms [Recovered/Resolved]
  - Acute kidney injury [Recovered/Resolved]
  - Drug monitoring procedure not performed [Recovered/Resolved]
  - Cardiac failure acute [Recovered/Resolved]

NARRATIVE: CASE EVENT DATE: 20250310
